FAERS Safety Report 6887492-3 (Version None)
Quarter: 2010Q3

REPORT INFORMATION
  Report Type: 
  Country: None (occurrence: None)
  Receive Date: 20100730
  Receipt Date: 20100720
  Transmission Date: 20110219
  Serious: Yes (Other)
  Sender: FDA-Public Use
  Company Number: US-BAYER-201026235NA

PATIENT
  Age: 23 Year
  Sex: Female

DRUGS (2)
  1. MIRENA [Suspect]
     Indication: PRODUCT USED FOR UNKNOWN INDICATION
     Dosage: MIRENA INSERTED 4 YEARS PRIOR TO REPORT
     Route: 015
     Dates: start: 20060101, end: 20100625
  2. METHOTREXATE [Concomitant]
     Indication: ECTOPIC PREGNANCY
     Dates: start: 20100706

REACTIONS (3)
  - ECTOPIC PREGNANCY [None]
  - PELVIC PAIN [None]
  - VAGINAL HAEMORRHAGE [None]
